FAERS Safety Report 10304665 (Version 1)
Quarter: 2014Q3

REPORT INFORMATION
  Report Type: Spontaneous
  Country: FR (occurrence: FR)
  Receive Date: 20140715
  Receipt Date: 20140715
  Transmission Date: 20150326
  Serious: Yes (Hospitalization, Other)
  Sender: FDA-Public Use
  Company Number: FR-009507513-1407FRA004382

PATIENT
  Age: 12 Year
  Sex: Female

DRUGS (4)
  1. PLITICAN [Suspect]
     Active Substance: ALIZAPRIDE HYDROCHLORIDE
     Dosage: 50 MG, Q6H
     Route: 042
     Dates: start: 20140512, end: 20140515
  2. METHOTREXATE [Suspect]
     Active Substance: METHOTREXATE
     Indication: OSTEOSARCOMA
     Dosage: 17 G, CYCLICAL
     Route: 042
     Dates: start: 20140512
  3. ZOPHREN (ONDANSETRON) [Suspect]
     Active Substance: ONDANSETRON
     Dosage: 1 DF, BID
     Route: 042
     Dates: start: 20140512, end: 20140515
  4. EMEND [Suspect]
     Active Substance: APREPITANT
     Dosage: 1 DF, TID
     Route: 048
     Dates: start: 20140512, end: 20140514

REACTIONS (1)
  - Aphasia [Recovered/Resolved]

NARRATIVE: CASE EVENT DATE: 20140513
